FAERS Safety Report 7211382-X (Version None)
Quarter: 2010Q4

REPORT INFORMATION
  Report Type: 
  Country: None (occurrence: None)
  Receive Date: 20101223
  Receipt Date: 20101210
  Transmission Date: 20110411
  Serious: Yes (Hospitalization)
  Sender: FDA-Public Use
  Company Number: DSM-2010-01830

PATIENT
  Age: 58 Year
  Sex: Male

DRUGS (2)
  1. VOCADO (OLMESARTAN MEDOXOMIL, AMLODIPINE BESILATE) (TABLET) (OLMESARTA [Suspect]
     Indication: ESSENTIAL HYPERTENSION
     Dosage: 40/5 MG (1 IN 1 D), ORAL
     Route: 048
     Dates: start: 20100705, end: 20100906
  2. NEBIVOLOL (NEBIVOLOL) (NEBIVOLOL) [Concomitant]

REACTIONS (1)
  - HYPERTENSIVE CRISIS [None]
